FAERS Safety Report 21244232 (Version 1)
Quarter: 2022Q3

REPORT INFORMATION
  Report Type: Spontaneous
  Country: US (occurrence: US)
  Receive Date: 20220823
  Receipt Date: 20220823
  Transmission Date: 20221027
  Serious: No
  Sender: FDA-Public Use
  Company Number: US-VIIV HEALTHCARE LIMITED-US2022AMR119429

PATIENT
  Sex: Male

DRUGS (2)
  1. RILPIVIRINE [Suspect]
     Active Substance: RILPIVIRINE
     Indication: Product used for unknown indication
     Dosage: UNK, UNK, Z, 600 MG/3 ML EVERY TWO MONTHS
     Route: 030
     Dates: start: 202207
  2. CABOTEGRAVIR [Suspect]
     Active Substance: CABOTEGRAVIR
     Indication: Product used for unknown indication
     Dosage: UNK, UNK, Z, 600 MG/3 ML EVERY TWO MONTHS
     Route: 030
     Dates: start: 202207

REACTIONS (2)
  - Viral load increased [Unknown]
  - Off label use [Unknown]

NARRATIVE: CASE EVENT DATE: 20220701
